FAERS Safety Report 16386778 (Version 1)
Quarter: 2019Q2

REPORT INFORMATION
  Report Type: Spontaneous
  Country: JP (occurrence: JP)
  Receive Date: 20190604
  Receipt Date: 20190604
  Transmission Date: 20190711
  Serious: Yes (Other)
  Sender: FDA-Public Use
  Company Number: JP-TEVA-2019-JP-1059173

PATIENT
  Age: 7 Decade
  Sex: Male

DRUGS (4)
  1. RITUXIMAB. [Suspect]
     Active Substance: RITUXIMAB
     Indication: B-CELL LYMPHOMA
     Dosage: 375MG/M2, ONCE DAILY, CYCLIC (1ST CYCLE)
     Route: 041
     Dates: start: 20181127
  2. RITUXIMAB. [Suspect]
     Active Substance: RITUXIMAB
     Dosage: 375MG/M2, ONCE DAILY, CYCLIC (2ND CYCLE)
     Route: 041
     Dates: start: 20190109
  3. BENDAMUSTINE HYDROCHLORIDE. [Suspect]
     Active Substance: BENDAMUSTINE HYDROCHLORIDE
     Dosage: 90 MG/M2 ONCE DAILY, CYCLIC (2ND CYCLE)
     Route: 042
     Dates: start: 20190109, end: 20190110
  4. BENDAMUSTINE HYDROCHLORIDE. [Suspect]
     Active Substance: BENDAMUSTINE HYDROCHLORIDE
     Indication: B-CELL LYMPHOMA
     Dosage: 90 MG/M2 ONCE DAILY, CYCLIC (1ST CYCLE)
     Route: 042
     Dates: start: 20181128, end: 20181129

REACTIONS (5)
  - Rash [Recovering/Resolving]
  - Prescribed underdose [Unknown]
  - Generalised erythema [Unknown]
  - Injection site vasculitis [Unknown]
  - Pyrexia [Recovered/Resolved]

NARRATIVE: CASE EVENT DATE: 20181128
